FAERS Safety Report 6110327-3 (Version None)
Quarter: 2009Q1

REPORT INFORMATION
  Report Type: 
  Country: None (occurrence: None)
  Receive Date: 20090310
  Receipt Date: 20090226
  Transmission Date: 20090719
  Serious: Yes (Other)
  Sender: FDA-Public Use
  Company Number: FR-PFIZER INC-2009176125

PATIENT

DRUGS (9)
  1. ZYVOXID [Suspect]
     Dosage: UNK
     Route: 048
     Dates: start: 20071004, end: 20071203
  2. VIBRAMYCIN [Suspect]
     Dosage: UNK
     Dates: start: 20070822, end: 20071004
  3. ARANESP [Suspect]
     Indication: ANAEMIA
     Dosage: 300 UG, WEEKLY
     Dates: start: 20070124
  4. BACTRIM [Suspect]
     Dosage: UNK
     Dates: start: 20070822, end: 20071211
  5. ROCEPHIN [Suspect]
     Dosage: UNK
     Route: 042
  6. THALIDONE [Suspect]
     Dosage: UNK
     Route: 048
  7. ASPIRIN [Suspect]
     Dosage: UNK
     Route: 048
  8. FOLIC ACID [Suspect]
     Dosage: UNK
     Route: 048
     Dates: start: 20070922
  9. DURAGESIC-100 [Suspect]
     Dosage: UNK
     Route: 062
     Dates: start: 20071006

REACTIONS (1)
  - HEPATITIS CHOLESTATIC [None]
